FAERS Safety Report 23064301 (Version 1)
Quarter: 2023Q4

REPORT INFORMATION
  Report Type: Spontaneous
  Country: US (occurrence: US)
  Receive Date: 20231013
  Receipt Date: 20231013
  Transmission Date: 20240109
  Serious: Yes (Hospitalization, Other)
  Sender: FDA-Public Use
  Company Number: US-AMNEAL PHARMACEUTICALS-2023-AMRX-03570

PATIENT
  Age: 38 Year
  Sex: Male

DRUGS (1)
  1. AMPHETAMINE SULFATE [Suspect]
     Active Substance: AMPHETAMINE SULFATE
     Indication: Product used for unknown indication
     Dosage: UNK
     Route: 065

REACTIONS (4)
  - Acute respiratory failure [Recovering/Resolving]
  - Pulmonary oedema [Recovering/Resolving]
  - Pulmonary haemorrhage [Recovering/Resolving]
  - Toxicity to various agents [Recovering/Resolving]
